FAERS Safety Report 16414137 (Version 9)
Quarter: 2020Q3

REPORT INFORMATION
  Report Type: Report from Study
  Country: IL (occurrence: IL)
  Receive Date: 20190611
  Receipt Date: 20200921
  Transmission Date: 20201102
  Serious: Yes (Other)
  Sender: FDA-Public Use
  Company Number: PHHY2019IL131323

PATIENT
  Age: 18 Year
  Sex: Female
  Weight: 58 kg

DRUGS (5)
  1. DABRAFENIB [Suspect]
     Active Substance: DABRAFENIB
     Dosage: 125 MG, BID
     Route: 048
     Dates: start: 20191118
  2. DABRAFENIB [Suspect]
     Active Substance: DABRAFENIB
     Indication: GLIOMA
     Dosage: 125 MG, BID
     Route: 048
     Dates: start: 20181104
  3. DABRAFENIB [Suspect]
     Active Substance: DABRAFENIB
     Dosage: 125 MG, BID, (LAST DOSE OF ADMINISTRATION WAS ON 10 SEP 2020)
     Route: 048
     Dates: start: 20191121
  4. ELTROXIN [Concomitant]
     Active Substance: LEVOTHYROXINE
     Dosage: 100 UG, QD FOR 2 DAYS (LAST DOSE PRIOR TO ADVERSE EVENT WAS ON 10 SEP 2020)
     Route: 065
  5. ELTROXIN [Concomitant]
     Active Substance: LEVOTHYROXINE
     Indication: HYPOTHYROIDISM
     Dosage: 50 UG, QD FOR 5 DAYS
     Route: 065
     Dates: start: 2012

REACTIONS (5)
  - Weight increased [Not Recovered/Not Resolved]
  - Cataract subcapsular [Not Recovered/Not Resolved]
  - Neoplasm progression [Unknown]
  - Concomitant disease aggravated [Not Recovered/Not Resolved]
  - Melanocytic naevus [Not Recovered/Not Resolved]

NARRATIVE: CASE EVENT DATE: 20190603
